FAERS Safety Report 10407081 (Version 3)
Quarter: 2014Q4

REPORT INFORMATION
  Report Type: Spontaneous
  Country: US (occurrence: US)
  Receive Date: 20140825
  Receipt Date: 20141020
  Transmission Date: 20150528
  Serious: Yes (Hospitalization, Other)
  Sender: FDA-Public Use
  Company Number: US-GLAXOSMITHKLINE-A1085127A

PATIENT
  Sex: Female

DRUGS (17)
  1. FLUTICASONE [Concomitant]
     Active Substance: FLUTICASONE\FLUTICASONE PROPIONATE
  2. ASPIRIN. [Concomitant]
     Active Substance: ASPIRIN
  3. FOLIC ACID. [Concomitant]
     Active Substance: FOLIC ACID
  4. OMEPRAZOLE. [Concomitant]
     Active Substance: OMEPRAZOLE
  5. CRESTOR [Concomitant]
     Active Substance: ROSUVASTATIN CALCIUM
  6. METOPROLOL [Concomitant]
     Active Substance: METOPROLOL
  7. METHOTREXATE [Concomitant]
     Active Substance: METHOTREXATE
  8. VENTOLIN [Concomitant]
     Active Substance: ALBUTEROL SULFATE
  9. PREDNISONE. [Concomitant]
     Active Substance: PREDNISONE
  10. ALBUTEROL/IPRATROPIUM [Concomitant]
     Active Substance: ALBUTEROL\IPRATROPIUM
  11. PRESERVISION [Concomitant]
  12. NORTRIPTYLINE [Concomitant]
     Active Substance: NORTRIPTYLINE
  13. MULTIVITAMIN [Concomitant]
     Active Substance: VITAMINS
  14. ADVAIR HFA [Suspect]
     Active Substance: FLUTICASONE PROPIONATE\SALMETEROL XINAFOATE
     Indication: ASTHMA
     Dosage: 1 PUFF(S), BID
     Route: 065
     Dates: start: 2004
  15. COLACE [Concomitant]
     Active Substance: DOCUSATE SODIUM
  16. CALCIUM + VITAMIN D [Concomitant]
     Active Substance: CALCIUM\VITAMIN D
  17. TRAMADOL [Concomitant]
     Active Substance: TRAMADOL

REACTIONS (3)
  - Ill-defined disorder [Not Recovered/Not Resolved]
  - Pneumonia [Unknown]
  - Product quality issue [Unknown]
